FAERS Safety Report 16035696 (Version 1)
Quarter: 2019Q1

REPORT INFORMATION
  Report Type: Spontaneous
  Country: FR (occurrence: FR)
  Receive Date: 20190305
  Receipt Date: 20190305
  Transmission Date: 20190418
  Serious: Yes (Hospitalization)
  Sender: FDA-Public Use
  Company Number: FR-GALDERMA-FR19005500

PATIENT
  Age: 16 Year
  Sex: Male

DRUGS (4)
  1. TETRALYSAL (LYMECYCLINE) [Suspect]
     Active Substance: LYMECYCLINE
     Indication: ACNE
     Dosage: 300 MG
     Route: 048
     Dates: start: 20181012
  2. DIFFERIN [Suspect]
     Active Substance: ADAPALENE
     Indication: PRODUCT USED FOR UNKNOWN INDICATION
     Route: 061
  3. SENSIBIO SEBIUM MOISTURIZING [Concomitant]
  4. CLEANANCE GEL CLEANER [Concomitant]

REACTIONS (1)
  - Stevens-Johnson syndrome [Recovered/Resolved]

NARRATIVE: CASE EVENT DATE: 20181212
